FAERS Safety Report 6717379-8 (Version None)
Quarter: 2010Q2

REPORT INFORMATION
  Report Type: 
  Country: None (occurrence: None)
  Receive Date: 20100510
  Receipt Date: 20100506
  Transmission Date: 20101027
  Serious: Yes (Death, Hospitalization, Other)
  Sender: FDA-Public Use
  Company Number: ES-JNJFOC-20100501840

PATIENT
  Age: 78 Year
  Sex: Female

DRUGS (8)
  1. LEVOFLOXACIN [Suspect]
     Indication: PULMONARY TUBERCULOSIS
     Route: 048
  2. LEVOFLOXACIN [Suspect]
     Route: 048
  3. RIFATER [Suspect]
     Indication: PULMONARY TUBERCULOSIS
     Route: 048
  4. STREPTOMYCIN [Suspect]
     Indication: PULMONARY TUBERCULOSIS
     Route: 048
  5. NORFLOXACIN [Suspect]
     Indication: PULMONARY TUBERCULOSIS
     Route: 048
  6. ETHAMBUTOL [Suspect]
     Indication: PULMONARY TUBERCULOSIS
     Route: 048
  7. ETHAMBUTOL [Suspect]
     Route: 048
  8. STREPTOMYCIN [Suspect]
     Indication: DRUG USE FOR UNKNOWN INDICATION
     Dosage: 5 DSYS WEEKLY
     Route: 030

REACTIONS (5)
  - BRADYPHRENIA [None]
  - CHOLESTASIS [None]
  - DEATH [None]
  - HEPATIC FAILURE [None]
  - THROMBOCYTOPENIA [None]
